FAERS Safety Report 8030232-5 (Version None)
Quarter: 2011Q4

REPORT INFORMATION
  Report Type: 
  Country: None (occurrence: None)
  Receive Date: 20111130
  Receipt Date: 20110707
  Transmission Date: 20120403
  Serious: Yes (Hospitalization, Other)
  Sender: FDA-Public Use
  Company Number: US201007007857

PATIENT
  Sex: Male

DRUGS (12)
  1. LANTUS [Concomitant]
  2. PROPRANOLOL [Concomitant]
  3. LIPITOR [Concomitant]
  4. BYETTA [Suspect]
     Dates: start: 20070201, end: 20091201
  5. PERCOCET [Concomitant]
  6. NEURONTIN [Concomitant]
  7. MYSOLINE [Concomitant]
  8. NOVOLOG [Concomitant]
  9. ZOLOFT [Concomitant]
  10. KLONOPIN [Concomitant]
  11. MS CONTIN [Concomitant]
  12. GLUCOPHAGE [Concomitant]

REACTIONS (4)
  - RENAL FAILURE [None]
  - RENAL FAILURE ACUTE [None]
  - OFF LABEL USE [None]
  - PANCREATITIS [None]
